FAERS Safety Report 5907853-6 (Version None)
Quarter: 2008Q4

REPORT INFORMATION
  Report Type: 
  Country: None (occurrence: None)
  Receive Date: 20081003
  Receipt Date: 20080923
  Transmission Date: 20090506
  Serious: Yes (Other)
  Sender: FDA-Public Use
  Company Number: US-PFIZER INC-2008019707

PATIENT
  Sex: Male

DRUGS (3)
  1. LYRICA [Suspect]
     Indication: SPINAL FUSION SURGERY
  2. LYRICA [Suspect]
     Indication: BACK PAIN
  3. LYRICA [Suspect]
     Indication: LUMBAR RADICULOPATHY

REACTIONS (4)
  - OEDEMA PERIPHERAL [None]
  - RENAL PAIN [None]
  - SOMNOLENCE [None]
  - URINE OUTPUT DECREASED [None]
